FAERS Safety Report 8121053-3 (Version None)
Quarter: 2012Q1

REPORT INFORMATION
  Report Type: 
  Country: None (occurrence: None)
  Receive Date: 20120208
  Receipt Date: 20120201
  Transmission Date: 20120608
  Serious: Yes (Other)
  Sender: FDA-Public Use
  Company Number: US-BAYER-2012-010707

PATIENT
  Sex: Female

DRUGS (12)
  1. OMEPRAZOLE [Concomitant]
     Dosage: 20
  2. ASPIRIN [Concomitant]
     Dosage: 325 MG, UNK
  3. SYNTHROID [Concomitant]
     Dosage: 0.5 MG, UNK
  4. CLONIDINE [Concomitant]
     Dosage: 0.2
  5. TYLENOL WITH CODEIN #4 [Concomitant]
  6. TEGRETOL [Concomitant]
     Dosage: 200 MG, UNK
  7. AVELOX [Suspect]
     Indication: PNEUMONIA
     Dosage: 400 MG, QD
     Route: 048
     Dates: start: 20120128, end: 20120130
  8. AVELOX [Suspect]
     Indication: NON-CARDIAC CHEST PAIN
  9. LOSARTAN POTASSIUM [Concomitant]
     Dosage: 100 MG, UNK
  10. HYDRALAZINE HCL [Concomitant]
     Dosage: 50 MG, UNK
  11. LABETALOL HCL [Concomitant]
     Dosage: 100 MG, UNK
  12. SPIRONOLACTONE [Concomitant]
     Dosage: 250

REACTIONS (6)
  - CONFUSIONAL STATE [None]
  - DELIRIUM [None]
  - SKIN EXFOLIATION [None]
  - HALLUCINATION [None]
  - PARANOIA [None]
  - MUSCLE SPASTICITY [None]
